FAERS Safety Report 7624558-4 (Version None)
Quarter: 2011Q3

REPORT INFORMATION
  Report Type: 
  Country: None (occurrence: None)
  Receive Date: 20110720
  Receipt Date: 20110711
  Transmission Date: 20111222
  Serious: Yes (Other)
  Sender: FDA-Public Use
  Company Number: DE-ASTRAZENECA-2011SE41820

PATIENT
  Age: 26 Year
  Sex: Male

DRUGS (2)
  1. RISPERDAL [Concomitant]
     Route: 048
     Dates: start: 20070101, end: 20110601
  2. SEROQUEL XR [Suspect]
     Route: 048
     Dates: start: 20110101

REACTIONS (1)
  - BREAST MASS [None]
